FAERS Safety Report 8196626-2 (Version None)
Quarter: 2012Q1

REPORT INFORMATION
  Report Type: 
  Country: None (occurrence: None)
  Receive Date: 20120309
  Receipt Date: 20120306
  Transmission Date: 20120608
  Serious: Yes (Hospitalization)
  Sender: FDA-Public Use
  Company Number: US-AMGEN-USASP2011048973

PATIENT
  Age: 68 Year
  Sex: Female
  Weight: 74.739 kg

DRUGS (6)
  1. ARANESP [Suspect]
     Dosage: 500 MUG, UNK
     Dates: start: 20110920
  2. NEUPOGEN [Suspect]
     Indication: NEUTROPENIA
     Dosage: 300 MUG, UNK
     Dates: start: 20110920
  3. ARANESP [Suspect]
     Indication: ANAEMIA
     Dosage: 50 MUG, UNK
     Dates: start: 20110913
  4. PEGINTERFERON [Concomitant]
     Indication: HEPATITIS C
  5. RIBAVIRIN [Concomitant]
     Indication: HEPATITIS C
  6. TELAPREVIR [Concomitant]
     Indication: HEPATITIS C

REACTIONS (3)
  - HAEMATURIA [None]
  - HAEMOPTYSIS [None]
  - EPISTAXIS [None]
